FAERS Safety Report 7845268-4 (Version None)
Quarter: 2011Q4

REPORT INFORMATION
  Report Type: 
  Country: None (occurrence: None)
  Receive Date: 20111025
  Receipt Date: 20110818
  Transmission Date: 20120403
  Serious: No
  Sender: FDA-Public Use
  Company Number: US-BAYER-2011-079099

PATIENT
  Age: 86 Year
  Sex: Male
  Weight: 73 kg

DRUGS (15)
  1. ALEVE (CAPLET) [Suspect]
     Dosage: 1 U, BID
  2. METOPROLOL TARTRATE [Concomitant]
  3. MUCINEX [Concomitant]
  4. IPRATROPIUM BROMIDE [Concomitant]
  5. NORTRIPTYLINE HCL [Concomitant]
  6. PLAVIX [Concomitant]
  7. SIMVASTATIN [Concomitant]
  8. FISH OIL [Concomitant]
  9. STOOL SOFTENER [Concomitant]
  10. VITAMIN B12 [Concomitant]
  11. CENTRUM [Concomitant]
  12. ISOSORBIDE DINITRATE [Concomitant]
  13. ASPIRIN [Concomitant]
     Dosage: 81MG
  14. MIRTAZAPINE [Concomitant]
  15. MELATONIN [Concomitant]

REACTIONS (3)
  - INSOMNIA [None]
  - PARAESTHESIA [None]
  - MUSCLE TWITCHING [None]
